FAERS Safety Report 23296516 (Version 2)
Quarter: 2024Q1

REPORT INFORMATION
  Report Type: Spontaneous
  Country: GB (occurrence: GB)
  Receive Date: 20231214
  Receipt Date: 20240228
  Transmission Date: 20240410
  Serious: Yes (Hospitalization, Other)
  Sender: FDA-Public Use
  Company Number: GB-009507513-2312GBR004261

PATIENT
  Age: 81 Year
  Sex: Male
  Weight: 69 kg

DRUGS (4)
  1. PEMBROLIZUMAB [Suspect]
     Active Substance: PEMBROLIZUMAB
     Indication: Squamous cell carcinoma of head and neck
     Dosage: DAILY DOSE 400 MILLIGRAM
     Route: 042
     Dates: start: 20231026
  2. INVESTIGATIONAL PRODUCT [Suspect]
     Active Substance: INVESTIGATIONAL PRODUCT
     Indication: Squamous cell carcinoma of head and neck
     Dosage: 400 MICROGRAM
     Route: 023
     Dates: start: 20231023
  3. XYLOMETAZOLINE HYDROCHLORIDE [Concomitant]
     Active Substance: XYLOMETAZOLINE HYDROCHLORIDE
     Dosage: UNK
     Dates: start: 2017
  4. ATORVASTATIN [Concomitant]
     Active Substance: ATORVASTATIN
     Dosage: UNK, QD
     Dates: start: 2022

REACTIONS (34)
  - Immune-mediated myocarditis [Recovered/Resolved]
  - Dysphagia [Unknown]
  - Dehydration [Unknown]
  - Lower respiratory tract infection [Unknown]
  - Ventricular hypokinesia [Unknown]
  - Dysphonia [Unknown]
  - Gastrostomy [Unknown]
  - Dyspnoea exertional [Unknown]
  - Jejunal perforation [Unknown]
  - Gastrointestinal tube insertion [Unknown]
  - Gastrostomy [Unknown]
  - Hypothyroidism [Unknown]
  - Fatigue [Unknown]
  - Wheezing [Unknown]
  - Thyroxine increased [Unknown]
  - Blood creatine phosphokinase increased [Unknown]
  - Alanine aminotransferase increased [Unknown]
  - Aspartate aminotransferase increased [Unknown]
  - Chest discomfort [Unknown]
  - Oral candidiasis [Unknown]
  - Secretion discharge [Unknown]
  - Oxygen saturation decreased [Recovered/Resolved]
  - Respiratory rate increased [Unknown]
  - Atrioventricular block second degree [Unknown]
  - Troponin I increased [Unknown]
  - Brain natriuretic peptide increased [Unknown]
  - Blood bilirubin abnormal [Unknown]
  - SARS-CoV-2 test positive [Unknown]
  - Herpes zoster [Unknown]
  - Agitation [Unknown]
  - Pain [Unknown]
  - Hypercholesterolaemia [Unknown]
  - Blood potassium abnormal [Unknown]
  - Blood phosphorus abnormal [Unknown]

NARRATIVE: CASE EVENT DATE: 20230101
